FAERS Safety Report 17157547 (Version 1)
Quarter: 2019Q4

REPORT INFORMATION
  Report Type: Spontaneous
  Country: US (occurrence: US)
  Receive Date: 20191216
  Receipt Date: 20191216
  Transmission Date: 20200122
  Serious: No
  Sender: FDA-Public Use
  Company Number: US-ASTRAZENECA-2019SF76137

PATIENT
  Age: 350 Day
  Sex: Male
  Weight: 8.6 kg

DRUGS (11)
  1. FLONASE [Concomitant]
     Active Substance: FLUTICASONE PROPIONATE
  2. SYNAGIS [Suspect]
     Active Substance: PALIVIZUMAB
     Indication: SLEEP APNOEA SYNDROME
     Route: 030
  3. SYNAGIS [Suspect]
     Active Substance: PALIVIZUMAB
     Indication: DYSPNOEA
     Route: 030
  4. SYNAGIS [Suspect]
     Active Substance: PALIVIZUMAB
     Indication: TRISOMY 21
     Dosage: 50MG/0.5ML, 15 MG/KG MONTHLY
     Route: 030
  5. METRONIDAZOLE. [Concomitant]
     Active Substance: METRONIDAZOLE
  6. SYNAGIS [Suspect]
     Active Substance: PALIVIZUMAB
     Indication: DYSPNOEA
     Dosage: 50MG/0.5ML, 15 MG/KG MONTHLY
     Route: 030
  7. SYNAGIS [Suspect]
     Active Substance: PALIVIZUMAB
     Indication: TRISOMY 21
     Route: 030
  8. PULMICORT TURBUHALER [Suspect]
     Active Substance: BUDESONIDE
     Route: 055
  9. SYNAGIS [Suspect]
     Active Substance: PALIVIZUMAB
     Indication: SLEEP APNOEA SYNDROME
     Dosage: 50MG/0.5ML, 15 MG/KG MONTHLY
     Route: 030
  10. CETIRIZINE [Concomitant]
     Active Substance: CETIRIZINE HYDROCHLORIDE
  11. MIRALAX [Concomitant]
     Active Substance: POLYETHYLENE GLYCOL 3350

REACTIONS (2)
  - Gastroenteritis viral [Unknown]
  - Pyrexia [Unknown]

NARRATIVE: CASE EVENT DATE: 20191202
